FAERS Safety Report 5109654-8 (Version None)
Quarter: 2006Q3

REPORT INFORMATION
  Report Type: 
  Country: None (occurrence: None)
  Receive Date: 20060920
  Receipt Date: 20060904
  Transmission Date: 20061208
  Serious: Yes (Hospitalization)
  Sender: FDA-Public Use
  Company Number: JP-MERCK-0609USA01251

PATIENT
  Age: 84 Year
  Sex: Female

DRUGS (11)
  1. PEPCID [Suspect]
     Indication: GASTRITIS
     Route: 048
     Dates: start: 20050705, end: 20060823
  2. HERBESSER R [Suspect]
     Indication: HYPERTENSION
     Route: 048
     Dates: start: 20040615, end: 20060823
  3. TRANDOLAPRIL [Suspect]
     Indication: HYPERTENSION
     Route: 048
     Dates: start: 20040615, end: 20040712
  4. TRANDOLAPRIL [Suspect]
     Route: 048
     Dates: start: 20040713, end: 20040809
  5. TRANDOLAPRIL [Suspect]
     Route: 048
     Dates: start: 20040810, end: 20060823
  6. ASPIRIN [Concomitant]
     Indication: ANTIPLATELET THERAPY
     Route: 048
     Dates: start: 20040615
  7. MAINTATE [Concomitant]
     Indication: HYPERTENSION
     Route: 048
     Dates: start: 20040615
  8. SELBEX [Concomitant]
     Indication: GASTRITIS
     Route: 048
     Dates: start: 20040615, end: 20060823
  9. FLUITRAN [Concomitant]
     Indication: DIURETIC EFFECT
     Route: 048
     Dates: start: 20050208, end: 20060823
  10. PEPCID [Suspect]
     Route: 048
     Dates: start: 20040615, end: 20050704
  11. KINEDAK [Concomitant]
     Indication: DIABETES MELLITUS
     Route: 065
     Dates: start: 20060307, end: 20060710

REACTIONS (8)
  - AUTOIMMUNE HEPATITIS [None]
  - BLOOD PRESSURE INCREASED [None]
  - CHRONIC HEPATITIS [None]
  - FACE OEDEMA [None]
  - GALLBLADDER DISORDER [None]
  - HEPATIC FUNCTION ABNORMAL [None]
  - HEPATOMEGALY [None]
  - URINE OUTPUT DECREASED [None]
